FAERS Safety Report 5967971-3 (Version None)
Quarter: 2008Q4

REPORT INFORMATION
  Report Type: 
  Country: None (occurrence: None)
  Receive Date: 20081121
  Receipt Date: 20081121
  Transmission Date: 20090506
  Serious: Yes (Death)
  Sender: FDA-Public Use
  Company Number: None

PATIENT
  Age: 8 Year
  Sex: Female
  Weight: 34.5 kg

DRUGS (1)
  1. 131 I-MIBG [Suspect]
     Indication: NEUROBLASTOMA
     Dosage: 84MCI (2.5MCI) IV ONCE
     Route: 042

REACTIONS (3)
  - MALIGNANT NEOPLASM PROGRESSION [None]
  - NEUROBLASTOMA [None]
  - PYREXIA [None]
